FAERS Safety Report 4565226-5 (Version None)
Quarter: 2005Q1

REPORT INFORMATION
  Report Type: 
  Country: None (occurrence: None)
  Receive Date: 20050121
  Receipt Date: 20050107
  Transmission Date: 20050727
  Serious: Yes (Life-Threatening)
  Sender: FDA-Public Use
  Company Number: 601732

PATIENT
  Age: 73 Year
  Sex: Male

DRUGS (1)
  1. FEIBA VH IMMUNO [Suspect]
     Indication: HAEMOPHILIA A WITH ANTI FACTOR VIII
     Dosage: 5000 IU; BID
     Dates: start: 20041217, end: 20041220

REACTIONS (1)
  - MYOCARDIAL INFARCTION [None]
